FAERS Safety Report 16624077 (Version 1)
Quarter: 2019Q3

REPORT INFORMATION
  Report Type: Spontaneous
  Country: US (occurrence: US)
  Receive Date: 20190611
  Receipt Date: 20190611
  Transmission Date: 20191004
  Serious: No
  Sender: FDA-Public Use
  Company Number: None

PATIENT
  Age: 58 Year
  Sex: Male

DRUGS (1)
  1. CAPECITABINE TAB 500 MG [Suspect]
     Active Substance: CAPECITABINE
     Indication: COLON CANCER
     Route: 048
     Dates: start: 201903

REACTIONS (4)
  - Abnormal loss of weight [None]
  - Skin exfoliation [None]
  - Decreased appetite [None]
  - Haemorrhage [None]

NARRATIVE: CASE EVENT DATE: 20190611
